FAERS Safety Report 8032538-2 (Version None)
Quarter: 2012Q1

REPORT INFORMATION
  Report Type: 
  Country: None (occurrence: None)
  Receive Date: 20120110
  Receipt Date: 20111011
  Transmission Date: 20120608
  Serious: No
  Sender: FDA-Public Use
  Company Number: US-MYLANLABS-2011S1019241

PATIENT
  Age: 59 Year
  Sex: Female
  Weight: 55.79 kg

DRUGS (1)
  1. LOVASTATIN [Suspect]
     Indication: BLOOD CHOLESTEROL INCREASED
     Route: 048
     Dates: start: 20110823, end: 20110912

REACTIONS (7)
  - FATIGUE [None]
  - DIARRHOEA [None]
  - LETHARGY [None]
  - MYALGIA [None]
  - ABDOMINAL DISTENSION [None]
  - FLATULENCE [None]
  - DARK CIRCLES UNDER EYES [None]
